FAERS Safety Report 18726658 (Version 1)
Quarter: 2021Q1

REPORT INFORMATION
  Report Type: Spontaneous
  Country: CA (occurrence: CA)
  Receive Date: 20210112
  Receipt Date: 20210112
  Transmission Date: 20210419
  Serious: Yes (Other)
  Sender: FDA-Public Use
  Company Number: CA-JNJFOC-20210112781

PATIENT
  Age: 48 Year
  Sex: Male
  Weight: 129 kg

DRUGS (2)
  1. MEZAVANT [Concomitant]
     Active Substance: MESALAMINE
     Route: 048
  2. INFLIXIMAB, RECOMBINANT [Suspect]
     Active Substance: INFLIXIMAB
     Indication: CROHN^S DISEASE
     Route: 042

REACTIONS (5)
  - Cortical dysplasia [Unknown]
  - Heart rate decreased [Unknown]
  - Drug specific antibody present [Unknown]
  - Product use issue [Unknown]
  - Off label use [Unknown]
